FAERS Safety Report 4559642-5 (Version None)
Quarter: 2005Q1

REPORT INFORMATION
  Report Type: 
  Country: None (occurrence: None)
  Receive Date: 20050113
  Receipt Date: 20040922
  Transmission Date: 20050727
  Serious: Yes (Hospitalization)
  Sender: FDA-Public Use
  Company Number: 346839

PATIENT
  Age: 61 Year
  Sex: Female
  Weight: 53.1 kg

DRUGS (5)
  1. FUZEON [Suspect]
     Indication: DRUG USE FOR UNKNOWN INDICATION
     Dosage: 90 MG    2 PER 1 DAY   SUBCUTANEOUS
     Route: 058
     Dates: start: 20030812
  2. XANAX [Concomitant]
  3. NEUPOGEN [Concomitant]
  4. ENSURE (NUTRITIONAL SUPPLEMENT) [Concomitant]
  5. ANTIRETROVIRAL NOS (ANTIRETROVIRAL NOS) [Concomitant]

REACTIONS (27)
  - ABDOMINAL DISTENSION [None]
  - ABDOMINAL PAIN [None]
  - BRONCHITIS [None]
  - CELLULITIS [None]
  - COLD SWEAT [None]
  - DYSPNOEA [None]
  - ERYTHEMA [None]
  - HEART RATE INCREASED [None]
  - HYPERHIDROSIS [None]
  - HYPERSENSITIVITY [None]
  - INJECTION SITE ERYTHEMA [None]
  - INJECTION SITE MASS [None]
  - INJECTION SITE NODULE [None]
  - INJECTION SITE REACTION [None]
  - INJECTION SITE SWELLING [None]
  - MEDICATION ERROR [None]
  - NO ADVERSE EFFECT [None]
  - PAIN IN EXTREMITY [None]
  - PNEUMOCYSTIS JIROVECI PNEUMONIA [None]
  - RESPIRATORY TRACT CONGESTION [None]
  - SINUSITIS [None]
  - SKIN DISORDER [None]
  - STRESS [None]
  - SWELLING [None]
  - VIRAL LOAD INCREASED [None]
  - WEIGHT DECREASED [None]
  - WEIGHT INCREASED [None]
